FAERS Safety Report 5424758-8 (Version None)
Quarter: 2007Q3

REPORT INFORMATION
  Report Type: 
  Country: None (occurrence: None)
  Receive Date: 20070822
  Receipt Date: 20070807
  Transmission Date: 20080115
  Serious: Yes (Other)
  Sender: FDA-Public Use
  Company Number: 07-001646

PATIENT
  Age: 40 Year
  Sex: Female
  Weight: 54 kg

DRUGS (2)
  1. LOESTRIN 24 FE [Suspect]
     Indication: CONTRACEPTION
     Dosage: UG, QD, ORAL
     Route: 048
     Dates: start: 20070601, end: 20070801
  2. METHOTREXATE [Concomitant]

REACTIONS (2)
  - DRUG INTERACTION [None]
  - TUMOUR MARKER TEST [None]
